FAERS Safety Report 7264544-X (Version None)
Quarter: 2011Q1

REPORT INFORMATION
  Report Type: 
  Country: None (occurrence: None)
  Receive Date: 20110131
  Receipt Date: 20110121
  Transmission Date: 20110831
  Serious: Yes (Other)
  Sender: FDA-Public Use
  Company Number: US-PFIZER INC-2011015679

PATIENT
  Sex: Female
  Weight: 74.83 kg

DRUGS (2)
  1. GABAPENTIN [Suspect]
     Indication: INSOMNIA
     Dosage: UNK
     Route: 048
  2. GABAPENTIN [Suspect]
     Indication: ANALGESIC THERAPY

REACTIONS (4)
  - GENERALISED OEDEMA [None]
  - DRY MOUTH [None]
  - TOOTH DISORDER [None]
  - DYSGEUSIA [None]
